FAERS Safety Report 16878335 (Version 1)
Quarter: 2019Q4

REPORT INFORMATION
  Report Type: Spontaneous
  Country: DE (occurrence: DE)
  Receive Date: 20191002
  Receipt Date: 20191002
  Transmission Date: 20200122
  Serious: Yes (Other)
  Sender: FDA-Public Use
  Company Number: DE-ANIPHARMA-2019-DE-000137

PATIENT
  Age: 70 Year
  Sex: Female

DRUGS (1)
  1. ATACAND [Suspect]
     Active Substance: CANDESARTAN CILEXETIL
     Indication: HYPERTENSION
     Dosage: 16 MG UNK
     Route: 048
     Dates: start: 20190811, end: 20190905

REACTIONS (5)
  - Ocular hyperaemia [Unknown]
  - Drug eruption [Unknown]
  - Eye swelling [Unknown]
  - Eye pruritus [Unknown]
  - Lip blister [Unknown]

NARRATIVE: CASE EVENT DATE: 20190818
